FAERS Safety Report 7611194-9 (Version None)
Quarter: 2011Q3

REPORT INFORMATION
  Report Type: 
  Country: None (occurrence: None)
  Receive Date: 20110715
  Receipt Date: 20110706
  Transmission Date: 20111222
  Serious: Yes (Hospitalization)
  Sender: FDA-Public Use
  Company Number: US-JNJFOC-2008055362

PATIENT
  Age: 19 Year
  Sex: Female

DRUGS (2)
  1. LAMOTRIGINE [Concomitant]
     Indication: BIPOLAR DISORDER
     Dosage: DAILY DOSE TEXT: UNSPECIFIED
     Route: 065
  2. DEXTROMETHORPHAN HYDROBROMIDE [Suspect]
     Indication: PRODUCT USED FOR UNKNOWN INDICATION
     Dosage: DAILY DOSE TEXT: UNSPECIFIED
     Route: 065

REACTIONS (2)
  - CONVULSION [None]
  - DRUG ABUSE [None]
